FAERS Safety Report 8832376 (Version 1)
Quarter: 2012Q4

REPORT INFORMATION
  Report Type: 
  Country: DE (occurrence: DE)
  Receive Date: 20121009
  Receipt Date: 20121009
  Transmission Date: 20130627
  Serious: Yes (Hospitalization)
  Sender: FDA-Public Use
  Company Number: DE-PFIZER INC-2012246299

PATIENT
  Age: 45 Year
  Sex: Female
  Weight: 64 kg

DRUGS (2)
  1. GENOTROPIN [Suspect]
     Indication: GROWTH HORMONE DEFICIENCY
     Dosage: 0.6 mg, 1x/day, 7 injections/week
     Route: 058
     Dates: start: 20050408
  2. MINIRIN [Concomitant]
     Indication: BLOOD ANTIDIURETIC HORMONE DECREASED
     Dosage: UNK
     Dates: start: 19780621

REACTIONS (1)
  - Sleep disorder [Unknown]
